FAERS Safety Report 8780171 (Version 1)
Quarter: 2012Q4

REPORT INFORMATION
  Report Type: Spontaneous
  Country: US (occurrence: None)
  Receive Date: 20120831
  Receipt Date: 20120831
  Transmission Date: 20130627
  Serious: Yes (Life-Threatening, Hospitalization, Other)
  Sender: FDA-Public Use
  Company Number: None

PATIENT
  Age: 52 Year
  Sex: Female
  Weight: 81.65 kg

DRUGS (2)
  1. FUROSEMIDE [Suspect]
     Dates: start: 19980815
  2. FUROSEMIDE [Suspect]
     Dates: start: 201201

REACTIONS (7)
  - Cough [None]
  - Rash [None]
  - Insomnia [None]
  - Wheezing [None]
  - Dyspnoea [None]
  - Fluid retention [None]
  - Swelling [None]
